FAERS Safety Report 8849406 (Version 1)
Quarter: 2012Q4

REPORT INFORMATION
  Report Type: Spontaneous
  Country: US (occurrence: None)
  Receive Date: 20121018
  Receipt Date: 20121018
  Transmission Date: 20130627
  Serious: Yes (Other)
  Sender: FDA-Public Use
  Company Number: None

PATIENT
  Age: 47 Year
  Sex: Male
  Weight: 82.1 kg

DRUGS (1)
  1. AZITHROMYCIN [Suspect]
     Indication: COUGH
     Dosage: 1 1 po
     Route: 048
     Dates: start: 20120908, end: 20120913

REACTIONS (5)
  - Abdominal pain lower [None]
  - Rectal haemorrhage [None]
  - Renal pain [None]
  - Diarrhoea [None]
  - Gastrointestinal oedema [None]
